FAERS Safety Report 17892695 (Version 1)
Quarter: 2020Q2

REPORT INFORMATION
  Report Type: Other
  Country: NL (occurrence: NL)
  Receive Date: 20200613
  Receipt Date: 20200613
  Transmission Date: 20200714
  Serious: Yes (Death)
  Sender: FDA-Public Use
  Company Number: NL-NUVO PHARMACEUTICALS INC-2085761

PATIENT
  Age: 77 Year
  Sex: Female

DRUGS (4)
  1. BETA BLOCKER [Concomitant]
     Active Substance: UNSPECIFIED INGREDIENT
     Route: 065
  2. POLYETHYLENE GLYCOL 3350. [Suspect]
     Active Substance: POLYETHYLENE GLYCOL 3350
     Indication: BOWEL PREPARATION
     Route: 065
  3. DIGOXIN. [Suspect]
     Active Substance: DIGOXIN
     Route: 065
  4. VITAMIN K ANTAGONIST [Concomitant]
     Route: 065

REACTIONS (3)
  - Hypokalaemia [Fatal]
  - Metabolic acidosis [Fatal]
  - Overdose [Fatal]
